FAERS Safety Report 7435944-X (Version None)
Quarter: 2011Q2

REPORT INFORMATION
  Report Type: 
  Country: None (occurrence: None)
  Receive Date: 20110418
  Receipt Date: 20110401
  Transmission Date: 20111010
  Serious: Yes (Death, Hospitalization)
  Sender: FDA-Public Use
  Company Number: 2011001314

PATIENT
  Age: 49 Year
  Sex: Female

DRUGS (2)
  1. ERLOTINIB HYDROCHLORIDE [Suspect]
     Indication: NEOPLASM
     Dosage: 75 MG QD, ORAL
     Route: 048
     Dates: start: 20090706
  2. GDC-0449 (CAPSULES) [Suspect]
     Indication: NEOPLASM
     Dosage: 150 MG, QDX2, ORAL
     Route: 048
     Dates: start: 20090706

REACTIONS (3)
  - ABDOMINAL PAIN [None]
  - DISEASE PROGRESSION [None]
  - PAIN [None]
